FAERS Safety Report 7005606-1 (Version None)
Quarter: 2010Q3

REPORT INFORMATION
  Report Type: 
  Country: None (occurrence: None)
  Receive Date: 20100921
  Receipt Date: 20100916
  Transmission Date: 20110219
  Serious: Yes (Hospitalization)
  Sender: FDA-Public Use
  Company Number: A0881906A

PATIENT
  Age: 64 Year
  Sex: Male

DRUGS (2)
  1. AVANDIA [Suspect]
     Route: 048
     Dates: start: 20050517, end: 20060731
  2. AVANDAMET [Suspect]
     Route: 048
     Dates: start: 20041031, end: 20051001

REACTIONS (1)
  - MYOCARDIAL INFARCTION [None]
